FAERS Safety Report 11463779 (Version 1)
Quarter: 2015Q3

REPORT INFORMATION
  Report Type: Spontaneous
  Country: US (occurrence: US)
  Receive Date: 20150831
  Receipt Date: 20150831
  Transmission Date: 20151125
  Serious: No
  Sender: FDA-Public Use
  Company Number: US-ELI_LILLY_AND_COMPANY-US201104008250

PATIENT
  Sex: Female

DRUGS (2)
  1. LISINOPRIL. [Interacting]
     Active Substance: LISINOPRIL
     Dosage: UNK
  2. CYMBALTA [Suspect]
     Active Substance: DULOXETINE HYDROCHLORIDE
     Dosage: 60 MG, UNK

REACTIONS (2)
  - Drug interaction [Unknown]
  - Headache [Unknown]
